FAERS Safety Report 8607190 (Version 4)
Quarter: 2014Q1

REPORT INFORMATION
  Report Type: Spontaneous
  Country: US (occurrence: US)
  Receive Date: 20120611
  Receipt Date: 20140108
  Transmission Date: 20141002
  Serious: Yes (Other)
  Sender: FDA-Public Use
  Company Number: US-ASTRAZENECA-2012SE34803

PATIENT
  Age: 51 Year
  Sex: Female

DRUGS (30)
  1. NEXIUM [Suspect]
     Indication: GASTRIC DISORDER
     Dosage: TWO TO THREE TIME DAILY
     Route: 048
  2. PRILOSEC [Suspect]
     Indication: GASTRIC DISORDER
     Route: 048
     Dates: start: 20000915
  3. PRILOSEC [Suspect]
     Indication: GASTROOESOPHAGEAL REFLUX DISEASE
     Route: 048
     Dates: start: 20000915
  4. PRILOSEC [Suspect]
     Indication: GASTRIC DISORDER
     Route: 048
     Dates: start: 20030530
  5. PRILOSEC [Suspect]
     Indication: GASTROOESOPHAGEAL REFLUX DISEASE
     Route: 048
     Dates: start: 20030530
  6. PRILOSEC OTC [Suspect]
     Route: 048
  7. PROTONIX [Concomitant]
     Dates: start: 20010910
  8. PREVACID [Concomitant]
     Dates: start: 20000613
  9. ZANTAC [Concomitant]
     Dates: start: 19930628
  10. PHENERGAN [Concomitant]
     Indication: GASTRIC DISORDER
     Dates: start: 19921016
  11. PHENERGAN [Concomitant]
     Indication: NAUSEA
     Dates: start: 19921016
  12. DICLOFENAC [Concomitant]
     Indication: PAIN
     Dates: start: 20090821
  13. DICLOFENAC [Concomitant]
     Indication: ARTHRITIS
     Dates: start: 20090821
  14. MOBIC [Concomitant]
  15. CELEBREX [Concomitant]
  16. 2 KIND OF STEROIDS [Concomitant]
  17. MILK OF MAGNESIA [Concomitant]
  18. MYLANTA [Concomitant]
  19. PERCOSET [Concomitant]
     Indication: GASTRIC DISORDER
     Dates: start: 20030806
  20. PERCOSET [Concomitant]
     Indication: ARTHRALGIA
     Dates: start: 20030806
  21. FERRUS SULFATE [Concomitant]
     Indication: IRON DEFICIENCY
     Dates: start: 20030530
  22. SUCRALFATE [Concomitant]
     Indication: GASTRIC DISORDER
  23. RESTASIS [Concomitant]
  24. AZASITE [Concomitant]
  25. ZADITOR [Concomitant]
  26. FLUOROMETHOLONE [Concomitant]
  27. HEMATANIC/ FOLIC ACID [Concomitant]
     Dosage: 324/1 MG DAILY
     Dates: start: 20090318
  28. ULTRAM [Concomitant]
     Indication: PAIN
     Dates: start: 20060214
  29. VITAMINE A [Concomitant]
     Dates: start: 20060214
  30. VITAMINE D [Concomitant]
     Dates: start: 20060214

REACTIONS (12)
  - Cerebrovascular accident [Unknown]
  - Osteoporosis [Unknown]
  - Multiple fractures [Unknown]
  - Ankle fracture [Unknown]
  - Bone pain [Unknown]
  - Post-traumatic stress disorder [Unknown]
  - Poor quality sleep [Unknown]
  - Osteoarthritis [Unknown]
  - Disturbance in attention [Unknown]
  - Arthritis [Unknown]
  - Abdominal pain upper [Unknown]
  - Depression [Unknown]
